FAERS Safety Report 12832814 (Version 4)
Quarter: 2016Q4

REPORT INFORMATION
  Report Type: Report from Study
  Country: US (occurrence: US)
  Receive Date: 20161010
  Receipt Date: 20161130
  Transmission Date: 20170207
  Serious: Yes (Death, Hospitalization, Other)
  Sender: FDA-Public Use
  Company Number: US-BAYER-2016-191274

PATIENT
  Age: 61 Year
  Sex: Male

DRUGS (1)
  1. NEXAVAR [Suspect]
     Active Substance: SORAFENIB
     Indication: HEPATOCELLULAR CARCINOMA
     Dosage: 400 MG, BID
     Route: 048
     Dates: start: 20160923, end: 20161019

REACTIONS (10)
  - Fatigue [None]
  - Tremor [None]
  - Asthenia [None]
  - Muscular weakness [None]
  - Death [Fatal]
  - Jaundice [None]
  - Constipation [None]
  - Decreased activity [None]
  - Dysphonia [None]
  - Stomatitis [None]

NARRATIVE: CASE EVENT DATE: 2016
